FAERS Safety Report 17460350 (Version 3)
Quarter: 2023Q1

REPORT INFORMATION
  Report Type: Report from Study
  Country: US (occurrence: US)
  Receive Date: 20200226
  Receipt Date: 20230213
  Transmission Date: 20230418
  Serious: No
  Sender: FDA-Public Use
  Company Number: US-PFIZER INC-2020084006

PATIENT
  Age: 73 Year
  Sex: Female
  Weight: 72.56 kg

DRUGS (1)
  1. PREGABALIN [Suspect]
     Active Substance: PREGABALIN
     Indication: Nerve injury
     Dosage: 150 MG, TWICE A DAY REGIMEN DOSE UNIT: MILLIGRAM
     Route: 065
     Dates: start: 201103

REACTIONS (4)
  - Nervousness [Recovered/Resolved]
  - Insomnia [Recovered/Resolved]
  - Pruritus [Unknown]
  - Feeling abnormal [Unknown]

NARRATIVE: CASE EVENT DATE: 20200101
